FAERS Safety Report 8968937 (Version 1)
Quarter: 2012Q4

REPORT INFORMATION
  Report Type: Spontaneous
  Country: US (occurrence: None)
  Receive Date: 20121214
  Receipt Date: 20121214
  Transmission Date: 20130627
  Serious: Yes (Other)
  Sender: FDA-Public Use
  Company Number: None

PATIENT
  Age: 52 Year
  Sex: Female
  Weight: 66.68 kg

DRUGS (1)
  1. BUPRORION XL 300 MG [Suspect]
     Dosage: XL 300 mg once daily po
     Route: 048
     Dates: start: 20120105, end: 20120112

REACTIONS (12)
  - Swollen tongue [None]
  - Dry mouth [None]
  - Dysphagia [None]
  - Headache [None]
  - Dizziness [None]
  - Confusional state [None]
  - Nausea [None]
  - Tinnitus [None]
  - Ear discomfort [None]
  - Disturbance in attention [None]
  - Poor quality sleep [None]
  - Anxiety [None]
